FAERS Safety Report 17364401 (Version 2)
Quarter: 2023Q1

REPORT INFORMATION
  Report Type: Report from Study
  Country: FR (occurrence: None)
  Receive Date: 20200204
  Receipt Date: 20230120
  Transmission Date: 20230418
  Serious: Yes (Hospitalization, Other)
  Sender: FDA-Public Use
  Company Number: FR-ROCHE-2536468

PATIENT
  Age: 59 Year
  Sex: Male
  Weight: 78 kg

DRUGS (37)
  1. COBIMETINIB [Suspect]
     Active Substance: COBIMETINIB
     Indication: Histiocytosis
     Route: 048
     Dates: start: 20191021, end: 20200901
  2. COBIMETINIB [Suspect]
     Active Substance: COBIMETINIB
     Indication: Histiocytosis
     Route: 048
     Dates: start: 20190727, end: 20191021
  3. COBIMETINIB [Suspect]
     Active Substance: COBIMETINIB
     Route: 048
     Dates: start: 20190727, end: 20200715
  4. FUROSEMIDE [Suspect]
     Active Substance: FUROSEMIDE
     Indication: Hypertension
     Route: 048
     Dates: start: 20200401
  5. LEVOTHYROXINE [Concomitant]
     Active Substance: LEVOTHYROXINE
     Route: 048
     Dates: start: 2012
  6. LEVOTHYROXINE [Concomitant]
     Active Substance: LEVOTHYROXINE
     Route: 048
     Dates: start: 20120101
  7. MINIRIN [Concomitant]
     Active Substance: DESMOPRESSIN ACETATE
     Indication: Diabetes mellitus
     Route: 048
     Dates: start: 20180704
  8. AMLODIPINE BESYLATE [Concomitant]
     Active Substance: AMLODIPINE BESYLATE
     Indication: Hypertension
     Route: 048
     Dates: start: 20100705, end: 20190918
  9. AMLODIPINE BESYLATE [Concomitant]
     Active Substance: AMLODIPINE BESYLATE
     Route: 048
     Dates: start: 20190918
  10. ALLOPURINOL [Concomitant]
     Active Substance: ALLOPURINOL
     Indication: Gout
     Route: 048
     Dates: start: 20100705, end: 2019
  11. NEBIDO [Concomitant]
     Active Substance: TESTOSTERONE UNDECANOATE
     Route: 048
     Dates: start: 20181129
  12. NEBIDO [Concomitant]
     Active Substance: TESTOSTERONE UNDECANOATE
     Route: 030
     Dates: start: 20180601
  13. JANUVIA [Concomitant]
     Active Substance: SITAGLIPTIN PHOSPHATE
     Indication: Diabetes mellitus
     Dosage: IN THE MORNING
     Route: 048
     Dates: start: 20181010
  14. JANUVIA [Concomitant]
     Active Substance: SITAGLIPTIN PHOSPHATE
     Route: 048
     Dates: start: 20180608
  15. FUROSEMIDE [Concomitant]
     Active Substance: FUROSEMIDE
     Indication: Dyspnoea
  16. DESMOPRESSIN ACETATE [Concomitant]
     Active Substance: DESMOPRESSIN ACETATE
     Indication: Diabetes insipidus
     Route: 030
  17. IRBESARTAN [Concomitant]
     Active Substance: IRBESARTAN
     Indication: Hypertension
  18. ESOMEPRAZOLE [Concomitant]
     Active Substance: ESOMEPRAZOLE
     Route: 048
     Dates: start: 20120101
  19. COLCHICINE\OPIUM\TIEMONIUM METHYLSULFATE [Concomitant]
     Active Substance: COLCHICINE\OPIUM\TIEMONIUM METHYLSULFATE
     Indication: Gout
     Route: 048
     Dates: start: 20150112
  20. CHOLECALCIFEROL [Concomitant]
     Active Substance: CHOLECALCIFEROL
     Indication: Vitamin D deficiency
     Route: 048
     Dates: start: 20180608
  21. NEBIVOLOL [Concomitant]
     Active Substance: NEBIVOLOL
     Indication: Cardiac failure
     Route: 048
     Dates: start: 20190918, end: 20191201
  22. NEBIVOLOL [Concomitant]
     Active Substance: NEBIVOLOL
     Indication: Hypertension
     Dosage: STRENGTH FOR HYPERTENSION 6.25 MG/D
     Route: 048
     Dates: start: 20191201
  23. PREDNISONE [Concomitant]
     Active Substance: PREDNISONE
     Route: 048
     Dates: start: 20200219, end: 20200416
  24. PREDNISONE [Concomitant]
     Active Substance: PREDNISONE
     Route: 048
     Dates: start: 20200416, end: 20200430
  25. PREDNISONE [Concomitant]
     Active Substance: PREDNISONE
     Route: 048
     Dates: start: 20200430, end: 20200514
  26. PREDNISONE [Concomitant]
     Active Substance: PREDNISONE
     Route: 048
     Dates: start: 20200514, end: 20200528
  27. PREDNISONE [Concomitant]
     Active Substance: PREDNISONE
     Route: 048
     Dates: start: 20200528
  28. RACECADOTRIL [Concomitant]
     Active Substance: RACECADOTRIL
     Indication: Diarrhoea
     Route: 048
     Dates: start: 20200303, end: 20200414
  29. RACECADOTRIL [Concomitant]
     Active Substance: RACECADOTRIL
     Route: 048
     Dates: start: 20200416
  30. PHLOROGLUCINOL [Concomitant]
     Active Substance: PHLOROGLUCINOL
     Indication: Abdominal pain
     Dosage: 1 TO 3 PER DAY
     Route: 048
     Dates: start: 20190820
  31. DOXYCYCLINE [Concomitant]
     Active Substance: DOXYCYCLINE
     Indication: Acne
     Route: 048
     Dates: start: 20191112
  32. LOCOID [Concomitant]
     Active Substance: HYDROCORTISONE BUTYRATE
     Dosage: ONCE/8 DAYS IN THE EVENING ON THE FACE AND TOP OF BACK THEN EVERY 2 (TEXT CUT OFF)
     Route: 061
     Dates: start: 20191118, end: 20191201
  33. LANSOPRAZOLE [Concomitant]
     Active Substance: LANSOPRAZOLE
     Dosage: IN THE EVENING
  34. BACTRIM [Concomitant]
     Active Substance: SULFAMETHOXAZOLE\TRIMETHOPRIM
     Dosage: 400/80 MG PER DAY
  35. PEGASYS [Concomitant]
     Active Substance: PEGINTERFERON ALFA-2A
     Dates: start: 201010
  36. ACETAMINOPHEN [Concomitant]
     Active Substance: ACETAMINOPHEN
  37. CODEINE [Concomitant]
     Active Substance: CODEINE

REACTIONS (3)
  - Myocarditis [Not Recovered/Not Resolved]
  - Renal impairment [Recovered/Resolved]
  - Overdose [Unknown]

NARRATIVE: CASE EVENT DATE: 20191120
